FAERS Safety Report 23093322 (Version 1)
Quarter: 2023Q4

REPORT INFORMATION
  Report Type: Report from Study
  Country: US (occurrence: US)
  Receive Date: 20231022
  Receipt Date: 20231022
  Transmission Date: 20240110
  Serious: Yes (Other)
  Sender: FDA-Public Use
  Company Number: US-ABBVIE-5453523

PATIENT
  Age: 19 Year
  Sex: Female

DRUGS (1)
  1. QULIPTA [Suspect]
     Active Substance: ATOGEPANT
     Indication: Product used for unknown indication
     Route: 048
     Dates: start: 20230210, end: 20231013

REACTIONS (2)
  - Tonsillectomy [Unknown]
  - Migraine [Unknown]

NARRATIVE: CASE EVENT DATE: 20231001
